FAERS Safety Report 25637063 (Version 5)
Quarter: 2025Q4

REPORT INFORMATION
  Report Type: Spontaneous
  Country: CL (occurrence: CL)
  Receive Date: 20250804
  Receipt Date: 20251029
  Transmission Date: 20260117
  Serious: Yes (Hospitalization, Other)
  Sender: NOVO NORDISK
  Company Number: CL-NOVOPROD-1489095

PATIENT
  Sex: Male
  Weight: 76 kg

DRUGS (2)
  1. NOVORAPID [Suspect]
     Active Substance: INSULIN ASPART
     Dosage: UNK
  2. NOVORAPID [Suspect]
     Active Substance: INSULIN ASPART
     Indication: Type 1 diabetes mellitus
     Dosage: NOT SPECIFIED, APPROXIMATELY 4 TIMES A DAY
     Dates: start: 2020

REACTIONS (6)
  - Hyperglycaemia [Recovered/Resolved]
  - Device failure [Unknown]
  - Device malfunction [Unknown]
  - Device issue [Unknown]
  - Device mechanical issue [Unknown]
  - Product quality issue [Unknown]

NARRATIVE: CASE EVENT DATE: 20240828
